FAERS Safety Report 9197818 (Version 3)
Quarter: 2013Q2

REPORT INFORMATION
  Report Type: Spontaneous
  Country: ZA (occurrence: ZA)
  Receive Date: 20130328
  Receipt Date: 20130509
  Transmission Date: 20140414
  Serious: Yes (Other)
  Sender: FDA-Public Use
  Company Number: ZA-NOVOPROD-368210

PATIENT
  Age: 30 Year
  Sex: Female
  Weight: 83 kg

DRUGS (3)
  1. NOVORAPID FLEXPEN [Suspect]
     Indication: GESTATIONAL DIABETES
     Dosage: 18 IU, TID
     Route: 058
     Dates: start: 20121221
  2. PROTAPHANE FLEXPEN [Suspect]
     Indication: GESTATIONAL DIABETES
     Dosage: 28 IU, SINGLE
     Route: 058
     Dates: start: 20121221
  3. MULTIVITAMINS, PLAIN [Concomitant]

REACTIONS (4)
  - Premature delivery [Unknown]
  - Blood pressure increased [Unknown]
  - Exposure during pregnancy [Unknown]
  - Blood glucose fluctuation [Recovered/Resolved]
